FAERS Safety Report 15555258 (Version 1)
Quarter: 2018Q4

REPORT INFORMATION
  Report Type: Spontaneous
  Country: US (occurrence: US)
  Receive Date: 20181026
  Receipt Date: 20181026
  Transmission Date: 20190205
  Serious: No
  Sender: FDA-Public Use
  Company Number: US-TEVA-2018-US-969782

PATIENT
  Sex: Female

DRUGS (1)
  1. AUSTEDO [Suspect]
     Active Substance: DEUTETRABENAZINE
     Route: 065

REACTIONS (13)
  - Amnesia [Unknown]
  - Gait disturbance [Unknown]
  - Pain [Unknown]
  - Speech disorder [Unknown]
  - Drug ineffective [Unknown]
  - Coordination abnormal [Unknown]
  - Wheelchair user [Unknown]
  - Frustration tolerance decreased [Unknown]
  - Psychomotor hyperactivity [Unknown]
  - Poor personal hygiene [Unknown]
  - Fall [Unknown]
  - Dysstasia [Unknown]
  - Communication disorder [Unknown]
